FAERS Safety Report 18594447 (Version 4)
Quarter: 2022Q4

REPORT INFORMATION
  Report Type: Report from Study
  Country: DE (occurrence: DE)
  Receive Date: 20201209
  Receipt Date: 20221207
  Transmission Date: 20230112
  Serious: Yes (Hospitalization)
  Sender: FDA-Public Use
  Company Number: DE-JNJFOC-20200422024

PATIENT
  Age: 4 Decade
  Sex: Female

DRUGS (6)
  1. SIMPONI [Suspect]
     Active Substance: GOLIMUMAB
     Indication: Psoriatic arthropathy
     Route: 058
     Dates: start: 20190424
  2. DICLOFENAC [Concomitant]
     Active Substance: DICLOFENAC
     Dosage: PER WEEK
     Dates: start: 20190215, end: 20191101
  3. METHOTREXATE SODIUM [Concomitant]
     Active Substance: METHOTREXATE SODIUM
     Dosage: 10 MG WEEKLY
     Dates: start: 20191115, end: 20191115
  4. METHOTREXATE SODIUM [Concomitant]
     Active Substance: METHOTREXATE SODIUM
     Dosage: 10 MG WEEKLY
     Dates: start: 20200722
  5. TALTZ [Concomitant]
     Active Substance: IXEKIZUMAB
     Dates: start: 20181114
  6. TALTZ [Concomitant]
     Active Substance: IXEKIZUMAB
     Dates: start: 20181114

REACTIONS (11)
  - Diagnostic procedure [Recovered/Resolved]
  - Arthralgia [Recovered/Resolved]
  - Influenza like illness [Unknown]
  - Nasopharyngitis [Unknown]
  - Pulpitis dental [Unknown]
  - Photosensitivity reaction [Unknown]
  - Varicose vein [Unknown]
  - Haemorrhoids [Unknown]
  - Eye pruritus [Unknown]
  - Abscess neck [Unknown]
  - Nausea [Unknown]

NARRATIVE: CASE EVENT DATE: 20190701
